FAERS Safety Report 21645852 (Version 1)
Quarter: 2022Q4

REPORT INFORMATION
  Report Type: Report from Study
  Country: US (occurrence: US)
  Receive Date: 20221126
  Receipt Date: 20221126
  Transmission Date: 20230113
  Serious: No
  Sender: FDA-Public Use
  Company Number: US-ABBVIE-4164679

PATIENT
  Sex: Female

DRUGS (2)
  1. HUMIRA [Suspect]
     Active Substance: ADALIMUMAB
     Indication: Hidradenitis
     Dosage: DAY 15?FORM STRENGTH: 80 MILLIGRAM
     Route: 058
     Dates: start: 20211025, end: 20211025
  2. HUMIRA [Suspect]
     Active Substance: ADALIMUMAB
     Dosage: DAY 1?FORM STRENGTH: 80 MILLIGRAM
     Route: 058
     Dates: start: 20211010, end: 20211010

REACTIONS (1)
  - Hidradenitis [Not Recovered/Not Resolved]
